FAERS Safety Report 23243019 (Version 1)
Quarter: 2023Q4

REPORT INFORMATION
  Report Type: Spontaneous
  Country: TR (occurrence: TR)
  Receive Date: 20231130
  Receipt Date: 20231130
  Transmission Date: 20240109
  Serious: Yes (Hospitalization)
  Sender: FDA-Public Use
  Company Number: TR-STRIDES ARCOLAB LIMITED-2023SP017698

PATIENT

DRUGS (5)
  1. ETOPOSIDE [Suspect]
     Active Substance: ETOPOSIDE
     Indication: Lymphoma
     Dosage: 800 MILLIGRAM/SQ. METER
     Route: 065
  2. BICNU [Suspect]
     Active Substance: CARMUSTINE
     Indication: Lymphoma
     Dosage: 300 MILLIGRAM/SQ. METER
     Route: 065
  3. CYTARABINE [Suspect]
     Active Substance: CYTARABINE
     Indication: Lymphoma
     Dosage: 1600 MILLIGRAM/SQ. METER
     Route: 065
  4. MELPHALAN [Suspect]
     Active Substance: MELPHALAN
     Indication: Lymphoma
     Dosage: 140 MILLIGRAM/SQ. METER
     Route: 065
  5. DIMETHYL SULFOXIDE [Concomitant]
     Active Substance: DIMETHYL SULFOXIDE
     Indication: Organ preservation
     Dosage: UNK
     Route: 065

REACTIONS (2)
  - Ventricular fibrillation [Unknown]
  - Ventricular tachycardia [Unknown]
